FAERS Safety Report 7506874-X (Version None)
Quarter: 2011Q2

REPORT INFORMATION
  Report Type: 
  Country: None (occurrence: None)
  Receive Date: 20110526
  Receipt Date: 20110519
  Transmission Date: 20111010
  Serious: Yes (Other)
  Sender: FDA-Public Use
  Company Number: B0722088A

PATIENT
  Age: 7 Year
  Sex: Female
  Weight: 22 kg

DRUGS (6)
  1. ATRACURIUM BESYLATE [Suspect]
     Route: 042
     Dates: start: 20110117, end: 20110117
  2. PROPOFOL [Suspect]
     Route: 042
     Dates: start: 20110117, end: 20110117
  3. RANITIDINE [Suspect]
     Indication: PROPHYLAXIS
     Dosage: 30MG THREE TIMES PER DAY
     Route: 042
     Dates: start: 20110117, end: 20110118
  4. ULTIVA [Suspect]
     Dosage: 100MG PER DAY
     Route: 042
     Dates: start: 20110117, end: 20110117
  5. FENTANYL [Suspect]
     Route: 042
     Dates: start: 20110117, end: 20110117
  6. DEXAMETHASONE [Suspect]
     Dosage: 2MG PER DAY
     Route: 042
     Dates: start: 20110117, end: 20110117

REACTIONS (1)
  - HEPATITIS [None]
